FAERS Safety Report 15183988 (Version 3)
Quarter: 2023Q1

REPORT INFORMATION
  Report Type: Spontaneous
  Country: US (occurrence: US)
  Receive Date: 20180723
  Receipt Date: 20230324
  Transmission Date: 20230418
  Serious: Yes (Death, Disabling, Other)
  Sender: FDA-Public Use
  Company Number: US-009507513-1807USA008707

PATIENT
  Sex: Male

DRUGS (3)
  1. JANUVIA [Suspect]
     Active Substance: SITAGLIPTIN PHOSPHATE
     Indication: Type 2 diabetes mellitus
     Dosage: 100 MILLIGRAM, QD
     Route: 048
     Dates: start: 20120322, end: 201604
  2. BYDUREON [Suspect]
     Active Substance: EXENATIDE
     Indication: Diabetes mellitus
     Dosage: UNKNOWN
     Dates: start: 20150121, end: 201704
  3. VICTOZA [Suspect]
     Active Substance: LIRAGLUTIDE
     Indication: Type 2 diabetes mellitus
     Dosage: UNKNOWN
     Route: 065
     Dates: start: 20170720, end: 201710

REACTIONS (20)
  - Pancreatic carcinoma metastatic [Fatal]
  - Diabetes mellitus inadequate control [Unknown]
  - Metastases to liver [Unknown]
  - Angioedema [Unknown]
  - Metastases to abdominal cavity [Unknown]
  - Metastases to bone [Unknown]
  - Jaundice cholestatic [Unknown]
  - Pericardial effusion [Unknown]
  - Pancytopenia [Unknown]
  - Urinary retention [Unknown]
  - Acute kidney injury [Recovered/Resolved]
  - Acquired mixed hyperlipidaemia [Unknown]
  - Obesity [Unknown]
  - Diabetic nephropathy [Unknown]
  - Essential hypertension [Unknown]
  - Hypomagnesaemia [Unknown]
  - Presyncope [Unknown]
  - Urinary tract infection [Unknown]
  - Oedema peripheral [Unknown]
  - Abdominal pain upper [Unknown]

NARRATIVE: CASE EVENT DATE: 20120619
